FAERS Safety Report 10177228 (Version 2)
Quarter: 2014Q2

REPORT INFORMATION
  Report Type: Spontaneous
  Country: US (occurrence: US)
  Receive Date: 20140516
  Receipt Date: 20140620
  Transmission Date: 20141212
  Serious: No
  Sender: FDA-Public Use
  Company Number: US-TEVA-480606USA

PATIENT
  Age: 84 Year
  Sex: Female
  Weight: 67.19 kg

DRUGS (2)
  1. PROAIR HFA [Suspect]
     Indication: DYSPNOEA
     Dosage: 2 PUFFS EVERY 4 HOURS
     Route: 055
     Dates: start: 20140430
  2. PROAIR HFA [Suspect]
     Indication: WHEEZING

REACTIONS (1)
  - Tremor [Not Recovered/Not Resolved]
